FAERS Safety Report 17924308 (Version 4)
Quarter: 2020Q4

REPORT INFORMATION
  Report Type: Spontaneous
  Country: JP (occurrence: JP)
  Receive Date: 20200622
  Receipt Date: 20201012
  Transmission Date: 20210113
  Serious: Yes (Disabling)
  Sender: FDA-Public Use
  Company Number: JP-ABBVIE-20P-087-3454059-00

PATIENT
  Age: 8 Year
  Sex: Female
  Weight: 38 kg

DRUGS (4)
  1. LEUPLIN [Suspect]
     Active Substance: LEUPROLIDE ACETATE
     Dosage: 1.504 MILLIGRAM, Q4WEEKS
     Route: 058
     Dates: start: 20200106, end: 20200205
  2. LEUPLIN [Suspect]
     Active Substance: LEUPROLIDE ACETATE
     Dosage: 3.75 MILLIGRAM, Q4WEEKS
     Route: 058
     Dates: start: 20200527, end: 20200527
  3. LEUPLIN [Suspect]
     Active Substance: LEUPROLIDE ACETATE
     Indication: PRECOCIOUS PUBERTY
     Dosage: 1.316 MILLIGRAM, Q4WEEKS
     Route: 058
     Dates: start: 20191106, end: 20191204
  4. LEUPLIN [Suspect]
     Active Substance: LEUPROLIDE ACETATE
     Dosage: 1.88 MILLIGRAM, Q4WEEKS
     Route: 058
     Dates: start: 20200304, end: 20200430

REACTIONS (3)
  - Deafness neurosensory [Recovering/Resolving]
  - Arthralgia [Recovering/Resolving]
  - Precocious puberty [Recovering/Resolving]

NARRATIVE: CASE EVENT DATE: 201912
